FAERS Safety Report 7124842-7 (Version None)
Quarter: 2010Q4

REPORT INFORMATION
  Report Type: 
  Country: None (occurrence: None)
  Receive Date: 20101129
  Receipt Date: 20101117
  Transmission Date: 20110411
  Serious: Yes (Disabling, Other)
  Sender: FDA-Public Use
  Company Number: AU-ASTRAZENECA-2010SE19846

PATIENT
  Age: 63 Year
  Sex: Female
  Weight: 63 kg

DRUGS (13)
  1. CRESTOR [Suspect]
     Indication: HYPERCHOLESTEROLAEMIA
     Route: 048
     Dates: start: 20100301, end: 20100401
  2. CRESTOR [Suspect]
     Indication: HYPERLIPIDAEMIA
     Route: 048
     Dates: start: 20100301, end: 20100401
  3. CRESTOR [Suspect]
     Route: 048
     Dates: start: 20100401
  4. CRESTOR [Suspect]
     Route: 048
     Dates: start: 20100401
  5. NOVORAPID [Concomitant]
     Indication: DIABETES MELLITUS
     Route: 058
  6. NOVORAPID [Concomitant]
     Dosage: 5 UNIT AT NOON
     Route: 058
  7. NOVORAPID [Concomitant]
     Route: 058
  8. LEVEMIR [Concomitant]
     Indication: DIABETES MELLITUS
     Route: 058
  9. LEVEMIR [Concomitant]
     Route: 058
  10. ZOLOFT [Concomitant]
     Indication: DEPRESSION
  11. ZOLOFT [Concomitant]
  12. MOTILIUM [Concomitant]
     Indication: IMPAIRED GASTRIC EMPTYING
     Route: 048
  13. FOSAVANCE PLUS [Concomitant]
     Indication: OSTEOPOROTIC FRACTURE
     Dosage: 70/1500 1/WEEK
     Route: 048

REACTIONS (2)
  - BLOOD GLUCOSE DECREASED [None]
  - BLOOD INSULIN DECREASED [None]
